FAERS Safety Report 9412289 (Version 2)
Quarter: 2013Q3

REPORT INFORMATION
  Report Type: Spontaneous
  Country: US (occurrence: US)
  Receive Date: 20130722
  Receipt Date: 20130916
  Transmission Date: 20140515
  Serious: Yes (Hospitalization, Other)
  Sender: FDA-Public Use
  Company Number: US-PFIZER INC-2013209174

PATIENT
  Age: 66 Year
  Sex: Female

DRUGS (4)
  1. CELEBREX [Suspect]
     Dosage: UNK
  2. COUMADIN [Concomitant]
     Indication: THROMBOSIS PROPHYLAXIS
     Dosage: UNK
     Dates: start: 20130617, end: 20130625
  3. ASPIRIN [Concomitant]
     Indication: CORONARY ARTERY DISEASE
     Dosage: 81 MG DAILY
     Dates: start: 20130617
  4. PLAVIX [Concomitant]
     Indication: CAROTID ENDARTERECTOMY
     Dosage: 75 MG DAILY
     Dates: end: 20130610

REACTIONS (2)
  - Gastrointestinal haemorrhage [Recovered/Resolved]
  - Arthropathy [Unknown]
